FAERS Safety Report 6189153-5 (Version None)
Quarter: 2009Q2

REPORT INFORMATION
  Report Type: 
  Country: None (occurrence: None)
  Receive Date: 20090513
  Receipt Date: 20090319
  Transmission Date: 20091009
  Serious: No
  Sender: FDA-Public Use
  Company Number: A0774339A

PATIENT
  Age: 56 Year
  Sex: Female

DRUGS (3)
  1. TREXIMET [Suspect]
     Indication: MIGRAINE
     Dosage: 85MG VARIABLE DOSE
     Route: 048
     Dates: start: 20080101
  2. CLARITIN PRN [Concomitant]
  3. SUDAFED 12 HOUR [Concomitant]

REACTIONS (1)
  - HEADACHE [None]
